FAERS Safety Report 24960334 (Version 3)
Quarter: 2025Q2

REPORT INFORMATION
  Report Type: Report from Study
  Country: CA (occurrence: CA)
  Receive Date: 20250212
  Receipt Date: 20250630
  Transmission Date: 20250716
  Serious: Yes (Other)
  Sender: TAKEDA
  Company Number: CA-TAKEDA-2024TUS058168

PATIENT
  Age: 75 Year
  Sex: Female

DRUGS (30)
  1. VEDOLIZUMAB [Suspect]
     Active Substance: VEDOLIZUMAB
     Indication: Colitis ulcerative
  2. VEDOLIZUMAB [Suspect]
     Active Substance: VEDOLIZUMAB
  3. VEDOLIZUMAB [Suspect]
     Active Substance: VEDOLIZUMAB
     Dosage: 300 MILLIGRAM, Q6WEEKS
     Dates: start: 20241203
  4. VEDOLIZUMAB [Suspect]
     Active Substance: VEDOLIZUMAB
     Dosage: 300 MILLIGRAM, Q4WEEKS
     Dates: start: 20250108
  5. VEDOLIZUMAB [Suspect]
     Active Substance: VEDOLIZUMAB
     Dosage: 300 MILLIGRAM, Q4WEEKS
  6. ATENOLOL [Concomitant]
     Active Substance: ATENOLOL
  7. CELEBREX [Concomitant]
     Active Substance: CELECOXIB
  8. CYMBALTA [Concomitant]
     Active Substance: DULOXETINE HYDROCHLORIDE
  9. DOCUSATE SODIUM [Concomitant]
     Active Substance: DOCUSATE SODIUM
  10. ESOMEPRAZOLE [Concomitant]
     Active Substance: ESOMEPRAZOLE
  11. IRBESARTAN [Concomitant]
     Active Substance: IRBESARTAN
  12. LEVOTHYROXINE [Concomitant]
     Active Substance: LEVOTHYROXINE
  13. MESALAMINE [Concomitant]
     Active Substance: MESALAMINE
  14. MONTELUKAST [Concomitant]
     Active Substance: MONTELUKAST
  15. OZEMPIC [Concomitant]
     Active Substance: SEMAGLUTIDE
  16. RIVAROXABAN [Concomitant]
     Active Substance: RIVAROXABAN
  17. ROSUVASTATIN [Concomitant]
     Active Substance: ROSUVASTATIN
  18. SPIRIVA [Concomitant]
     Active Substance: TIOTROPIUM BROMIDE MONOHYDRATE
  19. ZENHALE [Concomitant]
     Active Substance: FORMOTEROL FUMARATE\MOMETASONE FUROATE
  20. VITAMIN B12 [Concomitant]
     Active Substance: CYANOCOBALAMIN
  21. VITAMIN D3 [Concomitant]
     Active Substance: CHOLECALCIFEROL
  22. FERAMAX [Concomitant]
     Active Substance: IRON\POLYSACCHARIDES
  23. GLUCOSAMINE [Concomitant]
     Active Substance: GLUCOSAMINE
  24. DIMETHYL SULFONE [Concomitant]
     Active Substance: DIMETHYL SULFONE
  25. MAGNESIUM [Concomitant]
     Active Substance: MAGNESIUM
  26. VITAMIN C [Concomitant]
     Active Substance: ASCORBIC ACID
  27. Cortiment [Concomitant]
  28. CALCIUM [Concomitant]
     Active Substance: CALCIUM
  29. CARBIDOPA\LEVODOPA [Concomitant]
     Active Substance: CARBIDOPA\LEVODOPA
  30. PENTASA [Concomitant]
     Active Substance: MESALAMINE

REACTIONS (4)
  - Clostridium difficile infection [Unknown]
  - Colitis [Unknown]
  - Drug ineffective [Unknown]
  - Off label use [Unknown]

NARRATIVE: CASE EVENT DATE: 20241203
